FAERS Safety Report 7492800-9 (Version None)
Quarter: 2011Q2

REPORT INFORMATION
  Report Type: 
  Country: None (occurrence: None)
  Receive Date: 20110519
  Receipt Date: 20110517
  Transmission Date: 20111010
  Serious: Yes (Other)
  Sender: FDA-Public Use
  Company Number: HU-BAYER-2011-039000

PATIENT
  Age: 78 Year
  Sex: Male

DRUGS (1)
  1. LEVITRA [Suspect]
     Indication: ERECTILE DYSFUNCTION
     Dosage: 10 MG, ONCE
     Route: 048
     Dates: start: 20110401, end: 20110401

REACTIONS (7)
  - MALAISE [None]
  - HYPOTENSION [None]
  - CHEST PAIN [None]
  - APHASIA [None]
  - FEAR OF DEATH [None]
  - PALPITATIONS [None]
  - BRAIN HYPOXIA [None]
